FAERS Safety Report 20163190 (Version 2)
Quarter: 2021Q4

REPORT INFORMATION
  Report Type: Report from Study
  Country: CA (occurrence: CA)
  Receive Date: 20211209
  Receipt Date: 20211223
  Transmission Date: 20220304
  Serious: Yes (Other)
  Sender: FDA-Public Use
  Company Number: CA-SAMSUNG BIOEPIS-SB-2021-27360

PATIENT
  Age: 22 Year
  Sex: Male

DRUGS (3)
  1. ETANERCEPT [Suspect]
     Active Substance: ETANERCEPT
     Indication: Ankylosing spondylitis
     Route: 065
     Dates: start: 20211115
  2. CELEBREX [Concomitant]
     Active Substance: CELECOXIB
     Indication: Ankylosing spondylitis
     Dosage: UNKNOWN
     Route: 065
  3. CELEBREX [Concomitant]
     Active Substance: CELECOXIB
     Dosage: UNKNOWN
     Route: 065

REACTIONS (6)
  - Shock [Recovering/Resolving]
  - Injection site pain [Recovered/Resolved]
  - Neck pain [Not Recovered/Not Resolved]
  - Costochondritis [Recovering/Resolving]
  - Conjunctivitis viral [Recovering/Resolving]
  - Psoriasis [Recovering/Resolving]

NARRATIVE: CASE EVENT DATE: 20211115
